FAERS Safety Report 8918208 (Version 1)
Quarter: 2012Q4

REPORT INFORMATION
  Report Type: 
  Country: IN (occurrence: IN)
  Receive Date: 20121120
  Receipt Date: 20121120
  Transmission Date: 20130627
  Serious: Yes (Other)
  Sender: FDA-Public Use
  Company Number: IN-ROXANE LABORATORIES, INC.-2012-RO-02424RO

PATIENT
  Age: 47 Year
  Sex: Male

DRUGS (5)
  1. MYCOPHENOLATE MOFETIL [Suspect]
     Indication: RENAL TRANSPLANT
  2. AZATHIOPRINE [Suspect]
     Indication: RENAL TRANSPLANT
  3. TACROLIMUS [Suspect]
     Indication: RENAL TRANSPLANT
     Dosage: 4 mg
  4. TACROLIMUS [Suspect]
     Dosage: 3 mg
  5. TACROLIMUS [Suspect]
     Dosage: 2 mg

REACTIONS (4)
  - Polyomavirus-associated nephropathy [Unknown]
  - Complications of transplanted kidney [Unknown]
  - Tubulointerstitial nephritis [Unknown]
  - Diarrhoea [Recovered/Resolved]
